FAERS Safety Report 24530859 (Version 1)
Quarter: 2024Q4

REPORT INFORMATION
  Report Type: Spontaneous
  Country: US (occurrence: US)
  Receive Date: 20241021
  Receipt Date: 20241021
  Transmission Date: 20250114
  Serious: No
  Sender: BIONPHARMA INC.
  Company Number: US-Bion-014114

PATIENT
  Age: 72 Year
  Sex: Female

DRUGS (1)
  1. LOPERAMIDE HYDROCHLORIDE [Suspect]
     Active Substance: LOPERAMIDE HYDROCHLORIDE
     Indication: Bowel movement irregularity
     Dates: start: 20241008

REACTIONS (3)
  - Intentional product misuse [Unknown]
  - Hypersensitivity [Unknown]
  - Pruritus [Unknown]
